FAERS Safety Report 4341827-4 (Version None)
Quarter: 2004Q2

REPORT INFORMATION
  Report Type: 
  Country: None (occurrence: None)
  Receive Date: 20040415
  Receipt Date: 20040329
  Transmission Date: 20050107
  Serious: Yes (Hospitalization)
  Sender: FDA-Public Use
  Company Number: FR_040303811

PATIENT
  Age: 16 Year
  Sex: Female

DRUGS (4)
  1. CEFACLOR [Suspect]
     Dates: start: 20020901, end: 20020927
  2. DERINOX [Concomitant]
  3. DIMETANE EXPECTORANT [Concomitant]
  4. BRONKIREX (CARBOCISTEINE) [Concomitant]

REACTIONS (5)
  - ABDOMINAL PAIN [None]
  - ANGIONEUROTIC OEDEMA [None]
  - ERYTHEMA [None]
  - NAUSEA [None]
  - URTICARIA [None]
